FAERS Safety Report 22019874 (Version 7)
Quarter: 2025Q1

REPORT INFORMATION
  Report Type: Spontaneous
  Country: US (occurrence: US)
  Receive Date: 20230222
  Receipt Date: 20250325
  Transmission Date: 20250409
  Serious: Yes (Hospitalization, Congenital Anomaly, Other)
  Sender: ROCHE
  Company Number: US-ROCHE-3283448

PATIENT
  Age: 7 Day
  Sex: Female
  Weight: 8.8 kg

DRUGS (4)
  1. EVRYSDI [Suspect]
     Active Substance: RISDIPLAM
     Indication: Spinal muscular atrophy
     Route: 048
     Dates: start: 20220810
  2. EVRYSDI [Suspect]
     Active Substance: RISDIPLAM
     Dosage: DOSE INCREASED PER THE FDA-LABEL AT APPROXIMATELY 2-MONTHS, 4-MONTHS AND 6 MONTHS OF AGE
     Route: 048
     Dates: start: 20220811
  3. EVRYSDI [Suspect]
     Active Substance: RISDIPLAM
     Dosage: AT 6.7 MONTHS OF AGE
     Route: 048
  4. SYNAGIS [Concomitant]
     Active Substance: PALIVIZUMAB
     Indication: Antiviral prophylaxis
     Route: 030
     Dates: start: 202210

REACTIONS (8)
  - Eye movement disorder [Unknown]
  - Opsoclonus [Unknown]
  - Optic nerve hypoplasia [Not Recovered/Not Resolved]
  - Somnolence [Recovered/Resolved]
  - Weight gain poor [Recovered/Resolved]
  - Motor dysfunction [Not Recovered/Not Resolved]
  - Lethargy [Recovered/Resolved]
  - Gross motor delay [Not Recovered/Not Resolved]

NARRATIVE: CASE EVENT DATE: 20220810
